FAERS Safety Report 23650755 (Version 1)
Quarter: 2024Q1

REPORT INFORMATION
  Report Type: Spontaneous
  Country: US (occurrence: US)
  Receive Date: 20240320
  Receipt Date: 20240320
  Transmission Date: 20240410
  Serious: Yes (Life-Threatening, Hospitalization)
  Sender: FDA-Public Use
  Company Number: US-AUROBINDO-AUR-APL-2013-09207

PATIENT
  Age: 31 Year
  Sex: Female

DRUGS (10)
  1. ONDANSETRON HYDROCHLORIDE [Suspect]
     Active Substance: ONDANSETRON HYDROCHLORIDE
     Indication: Nausea
     Dosage: UNK UNK,UNK,
     Route: 065
  2. OLANZAPINE [Suspect]
     Active Substance: OLANZAPINE
     Indication: Delirium
     Dosage: UNK UNK,AS NECESSARY,
     Route: 048
  3. OLANZAPINE [Suspect]
     Active Substance: OLANZAPINE
     Indication: Agitation
  4. OLANZAPINE [Suspect]
     Active Substance: OLANZAPINE
     Indication: Pain
  5. HALOPERIDOL [Suspect]
     Active Substance: HALOPERIDOL
     Indication: Agitation
     Dosage: 5 MG,UNK,
     Route: 042
  6. HALOPERIDOL [Suspect]
     Active Substance: HALOPERIDOL
     Dosage: UNK UNK,AS NECESSARY
     Route: 042
  7. METHADONE [Suspect]
     Active Substance: METHADONE HYDROCHLORIDE
     Indication: Back pain
     Dosage: 30 MG,UNK
     Route: 042
  8. METHADONE [Suspect]
     Active Substance: METHADONE HYDROCHLORIDE
     Indication: Abdominal pain
     Dosage: 5 MG,FOUR TIMES/DAY
     Route: 048
  9. METHADONE [Suspect]
     Active Substance: METHADONE HYDROCHLORIDE
     Indication: Drug withdrawal syndrome
  10. HYDROMORPHONE [Suspect]
     Active Substance: HYDROMORPHONE
     Indication: Nausea
     Dosage: UNK UNK,AS NECESSARY
     Route: 065

REACTIONS (5)
  - Torsade de pointes [Recovering/Resolving]
  - Unresponsive to stimuli [Unknown]
  - Ventricular tachycardia [Not Recovered/Not Resolved]
  - Electrocardiogram QT prolonged [Recovered/Resolved]
  - Ventricular extrasystoles [Unknown]
